FAERS Safety Report 6981435-X (Version None)
Quarter: 2010Q3

REPORT INFORMATION
  Report Type: 
  Country: None (occurrence: None)
  Receive Date: 20100914
  Receipt Date: 20100706
  Transmission Date: 20110219
  Serious: No
  Sender: FDA-Public Use
  Company Number: US-BRISTOL-MYERS SQUIBB COMPANY-15183833

PATIENT
  Age: 72 Year
  Sex: Female

DRUGS (9)
  1. MEGACE [Suspect]
     Indication: INCREASED APPETITE
     Dosage: 40MG/ML ORAL SUSPENSION
     Route: 048
     Dates: start: 20100623, end: 20100705
  2. INSULIN [Concomitant]
  3. PRILOSEC [Concomitant]
  4. OS-CAL [Concomitant]
  5. ACIDOPHILUS [Concomitant]
     Dosage: FORM CAPSULE
  6. DITROPAN XL [Concomitant]
  7. COLACE [Concomitant]
  8. PAXIL [Concomitant]
  9. ACETAMINOPHEN [Concomitant]

REACTIONS (1)
  - BLOOD GLUCOSE INCREASED [None]
